FAERS Safety Report 7734500-3 (Version None)
Quarter: 2011Q3

REPORT INFORMATION
  Report Type: 
  Country: None (occurrence: None)
  Receive Date: 20110907
  Receipt Date: 20101119
  Transmission Date: 20111222
  Serious: Yes (Hospitalization)
  Sender: FDA-Public Use
  Company Number: US-GLAXOSMITHKLINE-A0897091A

PATIENT
  Age: 48 Year
  Sex: Female

DRUGS (4)
  1. PREMARIN [Concomitant]
  2. INSULIN [Concomitant]
  3. DIAZIDE [Concomitant]
  4. AVANDIA [Suspect]
     Indication: TYPE 2 DIABETES MELLITUS
     Dosage: 8MG TWICE PER DAY
     Route: 048
     Dates: start: 19990825, end: 20020908

REACTIONS (5)
  - CHEST PAIN [None]
  - CARDIOVASCULAR DISORDER [None]
  - ARRHYTHMIA [None]
  - ANGINA UNSTABLE [None]
  - PALPITATIONS [None]
